FAERS Safety Report 12676003 (Version 1)
Quarter: 2016Q3

REPORT INFORMATION
  Report Type: Spontaneous
  Country: US (occurrence: None)
  Receive Date: 20160822
  Receipt Date: 20160822
  Transmission Date: 20161109
  Serious: Yes (Other)
  Sender: FDA-Public Use
  Company Number: None

PATIENT
  Age: 80 Year
  Sex: Male
  Weight: 96.16 kg

DRUGS (7)
  1. XTANDI [Suspect]
     Active Substance: ENZALUTAMIDE
     Indication: HORMONE-REFRACTORY PROSTATE CANCER
     Route: 048
     Dates: start: 20160611, end: 20160726
  2. PREDNISONE. [Concomitant]
     Active Substance: PREDNISONE
  3. PROBIOTIC [Concomitant]
     Active Substance: PROBIOTICS NOS
  4. CRANBERRY EXTRACT DMANNOSE [Concomitant]
  5. APATONE [Concomitant]
  6. VITAMIN D [Concomitant]
     Active Substance: CHOLECALCIFEROL
  7. CALCIUM CITRATE [Concomitant]
     Active Substance: CALCIUM CITRATE

REACTIONS (5)
  - Cognitive disorder [None]
  - Hypertension [None]
  - Dizziness [None]
  - Balance disorder [None]
  - Lethargy [None]

NARRATIVE: CASE EVENT DATE: 20160707
